FAERS Safety Report 17923303 (Version 1)
Quarter: 2020Q2

REPORT INFORMATION
  Report Type: Spontaneous
  Country: US (occurrence: US)
  Receive Date: 20200622
  Receipt Date: 20200622
  Transmission Date: 20200714
  Serious: Yes (Hospitalization, Other)
  Sender: FDA-Public Use
  Company Number: None

PATIENT
  Age: 40 Year
  Sex: Female
  Weight: 67.5 kg

DRUGS (8)
  1. VIMPAT [Suspect]
     Active Substance: LACOSAMIDE
     Indication: EPILEPSY
     Dosage: ?          QUANTITY:1 TABLET(S);?
     Route: 048
  2. KEPPRA [Suspect]
     Active Substance: LEVETIRACETAM
  3. PROGESTERONE. [Concomitant]
     Active Substance: PROGESTERONE
  4. RAINBOW LIGHT CALCIUM [Concomitant]
  5. HOLY BASIL [Concomitant]
  6. DEPAKOTE [Concomitant]
     Active Substance: DIVALPROEX SODIUM
  7. LOW OGESTREL [Concomitant]
     Active Substance: ETHINYL ESTRADIOL\NORGESTIMATE
  8. WOMEN^S MULTI VITAMIN [Concomitant]

REACTIONS (14)
  - Anxiety [None]
  - Cyst rupture [None]
  - Personality change [None]
  - Vaginal haemorrhage [None]
  - Adnexa uteri pain [None]
  - Heart rate increased [None]
  - Hypertension [None]
  - Vaginal cyst [None]
  - Insomnia [None]
  - Pain [None]
  - Waist circumference increased [None]
  - Abdominal discomfort [None]
  - Nausea [None]
  - Irritability [None]

NARRATIVE: CASE EVENT DATE: 20180101
